FAERS Safety Report 7266370-4 (Version None)
Quarter: 2011Q1

REPORT INFORMATION
  Report Type: 
  Country: None (occurrence: None)
  Receive Date: 20110131
  Receipt Date: 20110127
  Transmission Date: 20110831
  Serious: Yes (Hospitalization)
  Sender: FDA-Public Use
  Company Number: NL-TEVA-262508ISR

PATIENT
  Age: 26 Year
  Sex: Male

DRUGS (2)
  1. LITHIUM [Suspect]
  2. CLOZAPINE [Suspect]

REACTIONS (1)
  - CATATONIA [None]
